FAERS Safety Report 20672790 (Version 2)
Quarter: 2022Q2

REPORT INFORMATION
  Report Type: Report from Study
  Country: GB (occurrence: GB)
  Receive Date: 20220405
  Receipt Date: 20220609
  Transmission Date: 20220721
  Serious: Yes (Other)
  Sender: FDA-Public Use
  Company Number: GB-NOVARTISPH-NVSC2022GB072977

PATIENT
  Sex: Female

DRUGS (1)
  1. ERELZI [Suspect]
     Active Substance: ETANERCEPT-SZZS
     Indication: Psoriatic arthropathy
     Dosage: 50 MG, QW (ROUTE: AS DIRECTED)
     Route: 065

REACTIONS (5)
  - Diabetes mellitus [Unknown]
  - Lower respiratory tract infection [Unknown]
  - Ear infection [Unknown]
  - Urinary tract infection [Unknown]
  - Skin infection [Unknown]
